FAERS Safety Report 9242754 (Version 2)
Quarter: 2013Q3

REPORT INFORMATION
  Report Type: Spontaneous
  Country: BR (occurrence: BR)
  Receive Date: 20130419
  Receipt Date: 20130911
  Transmission Date: 20140515
  Serious: Yes (Hospitalization, Other)
  Sender: FDA-Public Use
  Company Number: BR-ABBOTT-13P-020-1067446-00

PATIENT
  Age: 49 Year
  Sex: Male
  Weight: 70 kg

DRUGS (11)
  1. HUMIRA [Suspect]
     Indication: CROHN^S DISEASE
     Dosage: WEEK 0
     Route: 058
     Dates: start: 20120906
  2. HUMIRA [Suspect]
     Dosage: WEEK 2
     Route: 058
  3. HUMIRA [Suspect]
     Route: 058
  4. ISOSORBIDE [Suspect]
     Indication: ANORECTAL DISORDER
     Route: 054
  5. ISOSORBIDE [Suspect]
     Indication: COLOSTOMY
  6. ISOSORBIDE [Suspect]
     Indication: PROPHYLAXIS
  7. ISOSORBIDE [Suspect]
     Indication: PROPHYLAXIS
  8. AZATHIOPRINE [Concomitant]
     Indication: CROHN^S DISEASE
     Dosage: 4 TABLETS IN THE MORNING
     Dates: start: 2008
  9. CODEINE [Concomitant]
     Indication: BACK DISORDER
     Dosage: 2 TABLETS AT MORNING AND 1 TAB AT NIGHT
     Route: 048
     Dates: start: 2011
  10. UNKNOWN MEDICATION [Concomitant]
     Indication: RELAXATION THERAPY
     Route: 048
     Dates: start: 2011
  11. OMEPRAZOLE [Concomitant]
     Indication: GASTRIC DISORDER
     Route: 048
     Dates: start: 2011

REACTIONS (9)
  - Asthenia [Recovered/Resolved]
  - Cyst [Recovering/Resolving]
  - Pain [Not Recovered/Not Resolved]
  - Immunodeficiency [Unknown]
  - Gastrointestinal infection [Unknown]
  - Diarrhoea [Unknown]
  - Diarrhoea [Unknown]
  - Faecal incontinence [Unknown]
  - Headache [Unknown]
